FAERS Safety Report 4286613-9 (Version None)
Quarter: 2004Q1

REPORT INFORMATION
  Report Type: 
  Country: None (occurrence: None)
  Receive Date: 20040204
  Receipt Date: 20040123
  Transmission Date: 20041129
  Serious: Yes (Hospitalization)
  Sender: FDA-Public Use
  Company Number: 163-20785-04010669 (0)

PATIENT
  Age: 70 Year
  Sex: Male

DRUGS (3)
  1. THALOMID [Suspect]
     Indication: MULTIPLE MYELOMA
     Dosage: SEE IMAGE
     Route: 048
     Dates: start: 19990801, end: 20030901
  2. BIAXIN [Concomitant]
  3. TOPROL (METOPROLOL) [Concomitant]

REACTIONS (7)
  - ATRIAL FIBRILLATION [None]
  - CONSTIPATION [None]
  - DIVERTICULAR PERFORATION [None]
  - DYSPEPSIA [None]
  - PNEUMONIA ASPIRATION [None]
  - PYREXIA [None]
  - WEIGHT DECREASED [None]
